FAERS Safety Report 10187020 (Version 1)
Quarter: 2014Q2

REPORT INFORMATION
  Report Type: Spontaneous
  Country: CN (occurrence: CN)
  Receive Date: 20140522
  Receipt Date: 20140522
  Transmission Date: 20141212
  Serious: Yes (Other)
  Sender: FDA-Public Use
  Company Number: CN-ROCHE-1405323

PATIENT
  Age: 59 Year
  Sex: Male
  Weight: 75 kg

DRUGS (3)
  1. ACTILYSE [Suspect]
     Indication: THROMBOSIS
     Route: 042
  2. ACTILYSE [Suspect]
     Route: 042
     Dates: start: 20130425, end: 20130425
  3. ACTILYSE [Suspect]
     Route: 042
     Dates: start: 20130425, end: 20130425

REACTIONS (2)
  - Chest pain [Not Recovered/Not Resolved]
  - Blood pressure decreased [Not Recovered/Not Resolved]
